FAERS Safety Report 16751950 (Version 1)
Quarter: 2019Q3

REPORT INFORMATION
  Report Type: Report from Study
  Country: AU (occurrence: AU)
  Receive Date: 20190828
  Receipt Date: 20190828
  Transmission Date: 20191005
  Serious: Yes (Death, Life-Threatening)
  Sender: FDA-Public Use
  Company Number: AU-EXELIXIS-CABO-19022969

PATIENT
  Age: 67 Year
  Sex: Female

DRUGS (4)
  1. KETOROLAC TROMETHALINE [Concomitant]
     Active Substance: KETOROLAC TROMETHAMINE
     Indication: INFLAMMATION
     Dosage: UNK
  2. KETOROLAC TROMETHALINE [Concomitant]
     Active Substance: KETOROLAC TROMETHAMINE
     Indication: PAIN
  3. CABOMETYX [Suspect]
     Active Substance: CABOZANTINIB S-MALATE
     Indication: METASTATIC RENAL CELL CARCINOMA
     Dosage: 60 MG, QD
     Route: 048
     Dates: start: 20190807, end: 20190815
  4. DEXAMETHASONE. [Concomitant]
     Active Substance: DEXAMETHASONE

REACTIONS (2)
  - Intestinal perforation [Fatal]
  - Malignant neoplasm progression [Fatal]

NARRATIVE: CASE EVENT DATE: 20190814
